FAERS Safety Report 13412657 (Version 1)
Quarter: 2017Q2

REPORT INFORMATION
  Report Type: Spontaneous
  Country: US (occurrence: US)
  Receive Date: 20170406
  Receipt Date: 20170406
  Transmission Date: 20170830
  Serious: Yes (Hospitalization)
  Sender: FDA-Public Use
  Company Number: None

PATIENT
  Age: 61 Year
  Sex: Male
  Weight: 81 kg

DRUGS (16)
  1. REMERON [Concomitant]
     Active Substance: MIRTAZAPINE
  2. SIMVASTATIN. [Concomitant]
     Active Substance: SIMVASTATIN
  3. DIABETES MONITOR [Concomitant]
  4. INSULIN [Concomitant]
     Active Substance: INSULIN NOS
  5. PAXIL [Concomitant]
     Active Substance: PAROXETINE HYDROCHLORIDE
  6. VITAMIN B [Concomitant]
     Active Substance: VITAMIN B
  7. ASPIRIN81 [Concomitant]
  8. LUSINOPRIL [Concomitant]
  9. VITAMIN D [Concomitant]
     Active Substance: CHOLECALCIFEROL
  10. BUPROPION. [Concomitant]
     Active Substance: BUPROPION
  11. HUMALOG [Concomitant]
     Active Substance: INSULIN LISPRO
  12. METFORMIN [Concomitant]
     Active Substance: METFORMIN HYDROCHLORIDE
  13. ZOLPIDEM [Suspect]
     Active Substance: ZOLPIDEM\ZOLPIDEM TARTRATE
     Indication: INSOMNIA
     Dosage: ?          QUANTITY:1 TABLET(S);?
     Route: 048
  14. NEURONTIN [Concomitant]
     Active Substance: GABAPENTIN
  15. VICTOZA [Concomitant]
     Active Substance: LIRAGLUTIDE
  16. VITAMIN C [Concomitant]
     Active Substance: ASCORBIC ACID

REACTIONS (5)
  - Abnormal sleep-related event [None]
  - Loss of consciousness [None]
  - Impaired driving ability [None]
  - Legal problem [None]
  - Memory impairment [None]

NARRATIVE: CASE EVENT DATE: 20161229
